FAERS Safety Report 9802778 (Version 2)
Quarter: 2014Q1

REPORT INFORMATION
  Report Type: Report from Study
  Country: US (occurrence: US)
  Receive Date: 20140108
  Receipt Date: 20140228
  Transmission Date: 20141002
  Serious: Yes (Hospitalization)
  Sender: FDA-Public Use
  Company Number: US-009507513-1401USA001585

PATIENT
  Age: 49 Year
  Sex: Female
  Weight: 48.1 kg

DRUGS (8)
  1. VORINOSTAT [Suspect]
     Indication: GLIOBLASTOMA
     Dosage: 400MG 7DAYS ON/7DAYS OFF
     Route: 048
     Dates: start: 20131121, end: 20131127
  2. VORINOSTAT [Suspect]
     Dosage: 400MG 7DAYS ON/7DAYS OFF
     Route: 048
     Dates: start: 20131205, end: 20131211
  3. BEVACIZUMAB [Suspect]
     Dosage: 10 MG/KG, Q2W
     Dates: start: 20131121
  4. BEVACIZUMAB [Suspect]
     Dosage: 10 MG/KG, Q2W
     Dates: start: 20131205
  5. MELATONIN [Concomitant]
     Dosage: 9 MG, NIGHTLY
  6. CHOLECALCIFEROL [Concomitant]
     Dosage: UNK, BID
  7. LEVETIRACETAM [Concomitant]
     Dosage: 500 MG, BID
  8. JUICE PLUS [Concomitant]
     Dosage: DAILY

REACTIONS (3)
  - Sinus bradycardia [Recovering/Resolving]
  - Muscular weakness [Not Recovered/Not Resolved]
  - Convulsion [Recovering/Resolving]
